FAERS Safety Report 14074674 (Version 2)
Quarter: 2017Q4

REPORT INFORMATION
  Report Type: Spontaneous
  Country: DE (occurrence: DE)
  Receive Date: 20171010
  Receipt Date: 20171124
  Transmission Date: 20180321
  Serious: Yes (Death)
  Sender: FDA-Public Use
  Company Number: PHHY2017DE148314

PATIENT
  Sex: Male
  Weight: 69 kg

DRUGS (2)
  1. EXELON [Suspect]
     Active Substance: RIVASTIGMINE TARTRATE
     Indication: DEMENTIA ALZHEIMER^S TYPE
     Dosage: 4.6 MG, QD
     Route: 062
     Dates: start: 20140409
  2. CIATYL-Z [Concomitant]
     Active Substance: ZUCLOPENTHIXOL
     Indication: DEMENTIA ALZHEIMER^S TYPE
     Dosage: 4 MG, QD
     Route: 065
     Dates: start: 20150116

REACTIONS (1)
  - Death [Fatal]

NARRATIVE: CASE EVENT DATE: 20160826
